FAERS Safety Report 20731047 (Version 1)
Quarter: 2022Q2

REPORT INFORMATION
  Report Type: Spontaneous
  Country: US (occurrence: None)
  Receive Date: 20220420
  Receipt Date: 20220420
  Transmission Date: 20220720
  Serious: Yes (Other)
  Sender: FDA-Public Use
  Company Number: None

PATIENT
  Age: 29 Year
  Sex: Male
  Weight: 94.5 kg

DRUGS (1)
  1. EPCLUSA [Suspect]
     Active Substance: SOFOSBUVIR\VELPATASVIR

REACTIONS (12)
  - Fatigue [None]
  - Dysstasia [None]
  - Headache [None]
  - Hyperhidrosis [None]
  - Chills [None]
  - Dyspnoea [None]
  - Arthralgia [None]
  - Hypersomnia [None]
  - Nausea [None]
  - Bedridden [None]
  - Pyrexia [None]
  - Vomiting [None]

NARRATIVE: CASE EVENT DATE: 20220416
